FAERS Safety Report 9028662 (Version 2)
Quarter: 2013Q2

REPORT INFORMATION
  Report Type: Report from Study
  Country: FI (occurrence: FI)
  Receive Date: 20130124
  Receipt Date: 20130422
  Transmission Date: 20140414
  Serious: Yes (Other)
  Sender: FDA-Public Use
  Company Number: PHHY2013FI004957

PATIENT
  Age: 26 Year
  Sex: Male

DRUGS (2)
  1. LEPONEX [Suspect]
     Indication: SCHIZOPHRENIA
     Dosage: 325 MG, QD
     Route: 048
     Dates: start: 2010
  2. LEPONEX [Suspect]
     Dosage: 250 MG, UNK

REACTIONS (4)
  - Metabolic syndrome [Unknown]
  - Hypertriglyceridaemia [Recovered/Resolved]
  - Blood glucose increased [Recovered/Resolved]
  - Overweight [Unknown]
